FAERS Safety Report 8272127-8 (Version None)
Quarter: 2012Q2

REPORT INFORMATION
  Report Type: 
  Country: None (occurrence: None)
  Receive Date: 20120410
  Receipt Date: 20120403
  Transmission Date: 20120825
  Serious: Yes (Hospitalization, Other)
  Sender: FDA-Public Use
  Company Number: US-JNJFOC-20110500369

PATIENT
  Sex: Female

DRUGS (1)
  1. LEVAQUIN [Suspect]
     Indication: PNEUMONIA
     Route: 048
     Dates: start: 20090404, end: 20090413

REACTIONS (5)
  - TENDON RUPTURE [None]
  - TENDON INJURY [None]
  - BREAST SWELLING [None]
  - DEPRESSION [None]
  - EFFUSION [None]
